FAERS Safety Report 23967056 (Version 3)
Quarter: 2024Q4

REPORT INFORMATION
  Report Type: Spontaneous
  Country: US (occurrence: US)
  Receive Date: 20240612
  Receipt Date: 20241108
  Transmission Date: 20250114
  Serious: No
  Sender: PFIZER
  Company Number: US-PFIZER INC-PV202400076270

PATIENT
  Age: 49 Year
  Sex: Female

DRUGS (1)
  1. XELJANZ XR [Suspect]
     Active Substance: TOFACITINIB CITRATE
     Dosage: UNK

REACTIONS (6)
  - Fatigue [Unknown]
  - Headache [Unknown]
  - Menopause [Unknown]
  - Memory impairment [Unknown]
  - Product dose omission issue [Unknown]
  - Product dose omission in error [Unknown]
